FAERS Safety Report 9004860 (Version 1)
Quarter: 2012Q4

REPORT INFORMATION
  Report Type: Spontaneous
  Country: US (occurrence: None)
  Receive Date: 20121226
  Receipt Date: 20121226
  Transmission Date: 20130627
  Serious: Yes (Other)
  Sender: FDA-Public Use
  Company Number: JPI-P-026697

PATIENT
  Age: 45 Year
  Sex: Male

DRUGS (5)
  1. XYREM (500 MILLIGRAM/ MILLILITERS, SOLUTION) (SODIUM OXYBATE) [Suspect]
     Indication: CATAPLEXY
     Dosage: (2.25 gm, 2 in 1 D)
     Route: 048
     Dates: start: 20070213, end: 2007
  2. XYREM (500 MILLIGRAM/ MILLILITERS, SOLUTION) (SODIUM OXYBATE) [Suspect]
     Indication: CATAPLEXY
     Route: 048
     Dates: start: 2007, end: 2007
  3. XYREM (500 MILLIGRAM/ MILLILITERS, SOLUTION) (SODIUM OXYBATE) [Suspect]
     Indication: CATAPLEXY
     Dosage: (4.5 gm, 2 in 1 D)
     Route: 048
     Dates: start: 20070703
  4. XYREM (500 MILLIGRAM/ MILLILITERS, SOLUTION) (SODIUM OXYBATE) [Suspect]
     Indication: CATAPLEXY
     Dosage: (2.25 gm first dose/4.5 gm second dose)
     Dates: start: 20121214
  5. XYREM (500 MILLIGRAM/ MILLILITERS, SOLUTION) (SODIUM OXYBATE) [Suspect]
     Indication: CATAPLEXY

REACTIONS (6)
  - Drug abuse [None]
  - Aggression [None]
  - Screaming [None]
  - Drug effect decreased [None]
  - Fall [None]
  - Tooth injury [None]
